FAERS Safety Report 14198986 (Version 1)
Quarter: 2017Q4

REPORT INFORMATION
  Report Type: Spontaneous
  Country: FR (occurrence: FR)
  Receive Date: 20171117
  Receipt Date: 20171117
  Transmission Date: 20180321
  Serious: Yes (Disabling)
  Sender: FDA-Public Use
  Company Number: FR-MERCK KGAA-2034507

PATIENT
  Sex: Male

DRUGS (1)
  1. NOVOTHYROX [Suspect]
     Active Substance: LEVOTHYROXINE SODIUM
     Indication: PRODUCT USED FOR UNKNOWN INDICATION

REACTIONS (11)
  - Depression [None]
  - Palpitations [None]
  - Visual impairment [None]
  - Vertigo [None]
  - Tremor [None]
  - Vision blurred [None]
  - Insomnia [None]
  - Fatigue [None]
  - Anxiety [None]
  - Dizziness [None]
  - Feelings of worthlessness [None]
